FAERS Safety Report 7681717-2 (Version None)
Quarter: 2011Q3

REPORT INFORMATION
  Report Type: 
  Country: None (occurrence: None)
  Receive Date: 20110812
  Receipt Date: 20110729
  Transmission Date: 20111222
  Serious: Yes (Death, Other)
  Sender: FDA-Public Use
  Company Number: GB-ARROW GEN-2011-10378

PATIENT
  Age: 66 Year
  Sex: Female

DRUGS (6)
  1. MIRTAZAPINE [Suspect]
     Indication: PRODUCT USED FOR UNKNOWN INDICATION
     Dosage: 45 MG, UNKNOWN
     Route: 065
  2. ASPIRIN [Suspect]
     Indication: PRODUCT USED FOR UNKNOWN INDICATION
     Dosage: UNK
     Route: 065
  3. LITHIUM CARBONATE [Suspect]
     Indication: PRODUCT USED FOR UNKNOWN INDICATION
     Dosage: 600 MG, UNKNOWN
     Route: 065
  4. CITALOPRAM HYDROBROMIDE [Suspect]
     Indication: PRODUCT USED FOR UNKNOWN INDICATION
     Dosage: 20 MG, UNKNOWN
     Route: 065
  5. MIRTAZAPINE [Suspect]
     Dosage: 30 MG, UNKNOWN
     Route: 065
  6. MIRTAZAPINE [Suspect]
     Dosage: 15 MG, UNKNOWN
     Route: 065

REACTIONS (7)
  - ANXIETY [None]
  - CONDITION AGGRAVATED [None]
  - COMPLETED SUICIDE [None]
  - OVERDOSE [None]
  - AGITATION [None]
  - CONFUSIONAL STATE [None]
  - HISTRIONIC PERSONALITY DISORDER [None]
